FAERS Safety Report 9841091 (Version 2)
Quarter: 2014Q1

REPORT INFORMATION
  Report Type: Spontaneous
  Country: US (occurrence: US)
  Receive Date: 20140124
  Receipt Date: 20140124
  Transmission Date: 20141002
  Serious: Yes (Death)
  Sender: FDA-Public Use
  Company Number: US-GE HEALTHCARE MEDICAL DIAGNOSTICS-OSCN-PR-0902S-0103

PATIENT
  Age: 34 Year
  Sex: Male
  Weight: 98.41 kg

DRUGS (4)
  1. OMNISCAN [Suspect]
     Indication: PRODUCT USED FOR UNKNOWN INDICATION
     Route: 042
     Dates: start: 19990802, end: 19990802
  2. OMNISCAN [Suspect]
     Route: 042
     Dates: start: 20030714, end: 20030714
  3. MAGNEVIST [Suspect]
     Indication: DIZZINESS
     Route: 042
     Dates: start: 20050310, end: 20050310
  4. MAGNEVIST [Suspect]
     Indication: SYNCOPE

REACTIONS (1)
  - Nephrogenic systemic fibrosis [Fatal]
